FAERS Safety Report 8500234-0 (Version None)
Quarter: 2012Q3

REPORT INFORMATION
  Report Type: 
  Country: None (occurrence: None)
  Receive Date: 20120710
  Receipt Date: 20120703
  Transmission Date: 20120928
  Serious: Yes (Hospitalization, Other)
  Sender: FDA-Public Use
  Company Number: PHHY2012FR057597

PATIENT
  Age: 89 Year
  Sex: Female

DRUGS (6)
  1. BROMAZEPAM [Suspect]
     Dosage: 7.5 MG, DAILY
     Route: 048
  2. BACTRIM [Concomitant]
     Route: 048
  3. VALSARTAN [Suspect]
     Dosage: 40 MG, QD
     Route: 048
     Dates: end: 20110906
  4. SPIRONOLACTONE [Suspect]
     Dosage: 25 MG, DAY
     Route: 048
     Dates: end: 20110906
  5. AMITRIPTYLINE HCL [Suspect]
     Dosage: 5 MG, DAY
     Route: 048
     Dates: end: 20110906
  6. CALCIDOSE VITAMINE D [Concomitant]
     Route: 048

REACTIONS (8)
  - PYREXIA [None]
  - DEHYDRATION [None]
  - FALL [None]
  - URINARY TRACT INFECTION [None]
  - BLOOD PRESSURE DECREASED [None]
  - HAEMATOMA [None]
  - RENAL FAILURE ACUTE [None]
  - HYPONATRAEMIA [None]
